FAERS Safety Report 5123344-7 (Version None)
Quarter: 2006Q4

REPORT INFORMATION
  Report Type: 
  Country: None (occurrence: None)
  Receive Date: 20061009
  Receipt Date: 20061003
  Transmission Date: 20070319
  Serious: Yes (Other)
  Sender: FDA-Public Use
  Company Number: US-JNJFOC-20061001199

PATIENT
  Sex: Female

DRUGS (7)
  1. FLEXERIL [Suspect]
     Indication: FIBROMYALGIA
     Dosage: 40-60 MG AT BEDTIME
     Route: 048
  2. LISINOPRIL [Concomitant]
     Indication: HYPERTENSION
  3. LOPRESSOR [Concomitant]
     Indication: HYPERTENSION
     Dosage: DAILY
  4. GLUCOPHAGE [Concomitant]
     Indication: DIABETES MELLITUS
  5. PAIN MEDICATION [Concomitant]
     Indication: ARTHRALGIA
     Dosage: DAILY
  6. SOMA [Concomitant]
     Indication: MUSCLE SPASMS
  7. EFFEXOR [Concomitant]
     Indication: POLYNEUROPATHY
     Dosage: DAILY

REACTIONS (2)
  - INTENTIONAL OVERDOSE [None]
  - RESTLESS LEGS SYNDROME [None]
